FAERS Safety Report 8577523-7 (Version None)
Quarter: 2012Q3

REPORT INFORMATION
  Report Type: 
  Country: None (occurrence: None)
  Receive Date: 20120725
  Receipt Date: 20120713
  Transmission Date: 20120928
  Serious: Yes (Hospitalization)
  Sender: FDA-Public Use
  Company Number: DSA_58597_2012

PATIENT
  Sex: Female

DRUGS (14)
  1. BENDROFLUMETHIAZINE [Concomitant]
  2. MIRTAZAPINE [Suspect]
     Indication: PRODUCT USED FOR UNKNOWN INDICATION
     Dosage: 30 MG, FREQUENCY UNSPECIFIEID, 15 MG, QD
  3. PAROXETINE HYDROCHLORIDE [Suspect]
  4. OMEPRAZOLE [Concomitant]
  5. RAMIPRIL [Concomitant]
  6. PAROXETINE HYDROCHLORIDE [Suspect]
     Indication: DEPRESSION
     Dosage: 20 MG QD, ORAL, 20 MG, BID, ORAL (1 TABLET DOSAGE UNKNOWN, (HALF A TABLET) (DOSE AND FREQUENCY UNSPE
     Route: 048
     Dates: start: 20111101, end: 20111101
  7. LORAZEPAM [Suspect]
     Indication: PRODUCT USED FOR UNKNOWN INDICATION
     Dosage: 1 MG, TID, DOSE HALVED
  8. METOCLOPRAMIDE HYDROCHLORIDE [Suspect]
     Indication: PRODUCT USED FOR UNKNOWN INDICATION
     Dosage: DF
  9. ACTRIVASTINE [Concomitant]
  10. FENOFIBRATE [Concomitant]
  11. TETRABENAZINE (TETRABENAZINE) [Suspect]
     Indication: PRODUCT USED FOR UNKNOWN INDICATION
     Dosage: 4.5 MG, QD
  12. ATORVASTATIN CALCIUM [Concomitant]
  13. BECONASE [Concomitant]
  14. PROPRANOLOL [Suspect]
     Indication: PRODUCT USED FOR UNKNOWN INDICATION
     Dosage: 10 MG, 6XDAY

REACTIONS (9)
  - HALLUCINATION [None]
  - GENERAL PHYSICAL HEALTH DETERIORATION [None]
  - AKATHISIA [None]
  - ADVERSE DRUG REACTION [None]
  - HYPOPHAGIA [None]
  - DYSKINESIA [None]
  - FALL [None]
  - DRUG EFFECT DECREASED [None]
  - JOINT CONTRACTURE [None]
